FAERS Safety Report 8143908-6 (Version None)
Quarter: 2012Q1

REPORT INFORMATION
  Report Type: 
  Country: None (occurrence: None)
  Receive Date: 20120217
  Receipt Date: 20120209
  Transmission Date: 20120608
  Serious: Yes (Hospitalization)
  Sender: FDA-Public Use
  Company Number: DE-ABBOTT-12P-062-0893040-00

PATIENT
  Sex: Female
  Weight: 76 kg

DRUGS (5)
  1. AZATHIOPRINE [Concomitant]
     Indication: COLITIS ULCERATIVE
     Dates: start: 20070125
  2. CIPRALEX [Concomitant]
     Indication: DEPRESSION
     Dates: start: 20070101
  3. AZULFIDINE [Concomitant]
     Indication: COLITIS ULCERATIVE
     Dates: start: 20070603
  4. HUMIRA [Suspect]
     Indication: COLITIS ULCERATIVE
     Route: 058
     Dates: start: 20091221, end: 20111220
  5. PREDNISONE TAB [Concomitant]
     Indication: COLITIS ULCERATIVE
     Dates: start: 20081203

REACTIONS (3)
  - LIMB DISCOMFORT [None]
  - MONOPARESIS [None]
  - CHEST DISCOMFORT [None]
